FAERS Safety Report 9007190 (Version 1)
Quarter: 2013Q1

REPORT INFORMATION
  Report Type: Spontaneous
  Country: US (occurrence: US)
  Receive Date: 20130110
  Receipt Date: 20130110
  Transmission Date: 20140127
  Serious: Yes (Other)
  Sender: FDA-Public Use
  Company Number: US-GLAXOSMITHKLINE-A1007134A

PATIENT
  Sex: Female

DRUGS (2)
  1. BENLYSTA [Suspect]
     Indication: SYSTEMIC LUPUS ERYTHEMATOSUS
     Route: 042
     Dates: start: 20120712, end: 20121030
  2. UNKNOWN [Concomitant]

REACTIONS (4)
  - Scleroderma [Not Recovered/Not Resolved]
  - Furuncle [Unknown]
  - Immune system disorder [Unknown]
  - Proteinuria [Unknown]
